FAERS Safety Report 4705527-0 (Version None)
Quarter: 2005Q2

REPORT INFORMATION
  Report Type: 
  Country: None (occurrence: None)
  Receive Date: 20050629
  Receipt Date: 20040915
  Transmission Date: 20051028
  Serious: Yes (Hospitalization)
  Sender: FDA-Public Use
  Company Number: 200411414EU

PATIENT
  Age: 57 Year
  Sex: Male
  Weight: 55 kg

DRUGS (6)
  1. CISPLATIN [Suspect]
     Indication: NEOPLASM MALIGNANT
     Dosage: 129 MG/DAY IV
     Route: 042
     Dates: start: 20030923, end: 20031230
  2. CISPLATIN [Suspect]
     Indication: NEOPLASM MALIGNANT
     Dosage: 129 MG/DAY IV
     Route: 042
     Dates: start: 20040109
  3. FLUOROURACIL [Suspect]
     Indication: NEOPLASM MALIGNANT
     Dosage: IV
     Route: 042
     Dates: start: 20030923, end: 20031230
  4. RADIOTHERAPY [Suspect]
     Indication: NEOPLASM MALIGNANT
     Dates: start: 20031230
  5. IV FLUIDS [Suspect]
     Indication: CHEMOTHERAPY
     Dosage: IV
     Route: 042
     Dates: start: 20031230, end: 20031230
  6. DEXAMETHASONE [Suspect]
     Indication: PROPHYLAXIS
     Dosage: 12 MG/DAY IV
     Route: 042
     Dates: start: 20031230, end: 20031230

REACTIONS (2)
  - BLOOD CREATININE INCREASED [None]
  - DIABETES MELLITUS [None]
